FAERS Safety Report 12932260 (Version 1)
Quarter: 2016Q4

REPORT INFORMATION
  Report Type: Spontaneous
  Country: FR (occurrence: FR)
  Receive Date: 20161111
  Receipt Date: 20161111
  Transmission Date: 20170207
  Serious: Yes (Other)
  Sender: FDA-Public Use
  Company Number: FR-AUROBINDO-AUR-APL-2016-13833

PATIENT
  Age: 2 Month
  Sex: Male

DRUGS (1)
  1. ALENDRONIC ACID [Suspect]
     Active Substance: ALENDRONIC ACID
     Indication: PRODUCT USED FOR UNKNOWN INDICATION
     Route: 065

REACTIONS (6)
  - Hypophosphataemia [Recovered/Resolved]
  - Foetal exposure timing unspecified [Recovered/Resolved]
  - Hypercalciuria [Recovered/Resolved]
  - Hypophosphataemic rickets [Recovered/Resolved]
  - Craniotabes [Recovered/Resolved]
  - Blood parathyroid hormone decreased [Recovered/Resolved]
